FAERS Safety Report 6988219-7 (Version None)
Quarter: 2010Q3

REPORT INFORMATION
  Report Type: 
  Country: None (occurrence: None)
  Receive Date: 20100916
  Receipt Date: 20100916
  Transmission Date: 20110219
  Serious: Yes (Hospitalization, Other)
  Sender: FDA-Public Use
  Company Number: GXKR2010GB10045

PATIENT
  Age: 55 Year
  Sex: Female

DRUGS (4)
  1. HYDRALAZINE (NGX) [Suspect]
     Dosage: 25 MG, BID
     Route: 065
     Dates: start: 20050101, end: 20080101
  2. PERINDOPRIL [Concomitant]
     Dosage: 4 MG PER DAY
     Route: 048
  3. AMLODIPINE [Concomitant]
     Dosage: 5 MG PER DAY
     Route: 048
  4. ATENOLOL [Concomitant]
     Dosage: 100MG PER DAY
     Route: 065

REACTIONS (12)
  - ANTI-NEUTROPHIL CYTOPLASMIC ANTIBODY POSITIVE VASCULITIS [None]
  - ANTINUCLEAR ANTIBODY POSITIVE [None]
  - ARTHRALGIA [None]
  - BUTTERFLY RASH [None]
  - CARDIAC MURMUR [None]
  - DYSPNOEA [None]
  - LETHARGY [None]
  - PANCYTOPENIA [None]
  - PYREXIA [None]
  - RENAL FAILURE ACUTE [None]
  - SYSTEMIC LUPUS ERYTHEMATOSUS [None]
  - VASCULITIC RASH [None]
